FAERS Safety Report 4855400-2 (Version None)
Quarter: 2005Q4

REPORT INFORMATION
  Report Type: 
  Country: None (occurrence: None)
  Receive Date: 20051125
  Receipt Date: 20050309
  Transmission Date: 20060501
  Serious: Yes (Hospitalization)
  Sender: FDA-Public Use
  Company Number: US-JNJFOC-20041205739

PATIENT
  Age: 70 Year
  Sex: Female

DRUGS (6)
  1. LEVAQUIN [Suspect]
     Indication: LUNG INFECTION
     Dosage: 500 MG, IN 1 DAY
     Dates: start: 20030101
  2. PREDNISONE TAB [Concomitant]
  3. ATIVAN [Concomitant]
  4. AMBIAN (ZOLPIDEM TARTRATE) [Concomitant]
  5. VITAMINS [Concomitant]
  6. BEXTRA [Concomitant]

REACTIONS (3)
  - ARTHRITIS [None]
  - EXOSTOSIS [None]
  - TENDON RUPTURE [None]
